FAERS Safety Report 4315904-8 (Version None)
Quarter: 2004Q1

REPORT INFORMATION
  Report Type: 
  Country: None (occurrence: None)
  Receive Date: 20040311
  Receipt Date: 20040311
  Transmission Date: 20041129
  Serious: Yes (Hospitalization)
  Sender: FDA-Public Use
  Company Number: None

PATIENT
  Sex: Female
  Weight: 58 kg

DRUGS (4)
  1. DOXORUBICIN HCL [Suspect]
     Indication: ENDOMETRIAL SARCOMA
     Dosage: 40MG/M2 EVERY 4 WE INTRAVENOUS
     Route: 042
     Dates: start: 20010615, end: 20011210
  2. MOTRIN [Concomitant]
  3. MINERAL OIL [Concomitant]
  4. MULTI-VITAMIN [Concomitant]

REACTIONS (3)
  - MARKEDLY REDUCED DIETARY INTAKE [None]
  - NAUSEA [None]
  - VOMITING [None]
